FAERS Safety Report 9406479 (Version 1)
Quarter: 2013Q3

REPORT INFORMATION
  Report Type: Spontaneous
  Country: ZA (occurrence: ZA)
  Receive Date: 20130718
  Receipt Date: 20130718
  Transmission Date: 20140515
  Serious: Yes (Death, Hospitalization, Other)
  Sender: FDA-Public Use
  Company Number: ZA-009507513-1307ZAF007040

PATIENT
  Age: 49 Year
  Sex: Female

DRUGS (2)
  1. CANCIDAS 50MG [Suspect]
  2. VFEND [Concomitant]

REACTIONS (2)
  - Cerebrovascular accident [Unknown]
  - Death [Fatal]
